FAERS Safety Report 5419798-9 (Version None)
Quarter: 2007Q3

REPORT INFORMATION
  Report Type: 
  Country: None (occurrence: None)
  Receive Date: 20070820
  Receipt Date: 20070813
  Transmission Date: 20080115
  Serious: Yes (Other)
  Sender: FDA-Public Use
  Company Number: BR-ASTRAZENECA-2007UW19599

PATIENT
  Age: 29 Year
  Sex: Female
  Weight: 71 kg

DRUGS (1)
  1. ZOLADEX [Suspect]
     Indication: LEIOMYOMA
     Route: 058
     Dates: start: 20061001, end: 20061001

REACTIONS (3)
  - AMENORRHOEA [None]
  - LEIOMYOMA [None]
  - WEIGHT INCREASED [None]
